FAERS Safety Report 6993580-3 (Version None)
Quarter: 2010Q3

REPORT INFORMATION
  Report Type: 
  Country: None (occurrence: None)
  Receive Date: 20100917
  Receipt Date: 20100908
  Transmission Date: 20110219
  Serious: Yes (Hospitalization, Other)
  Sender: FDA-Public Use
  Company Number: PHFR2010GB03151

PATIENT
  Sex: Male

DRUGS (1)
  1. CLOZARIL [Suspect]
     Indication: SCHIZOPHRENIA
     Dosage: UNK
     Route: 048
     Dates: start: 20070222

REACTIONS (7)
  - ORCHITIS [None]
  - PALLOR [None]
  - PAROTITIS [None]
  - SALIVARY HYPERSECRETION [None]
  - SWELLING FACE [None]
  - TESTICULAR PAIN [None]
  - TESTICULAR SWELLING [None]
